FAERS Safety Report 5396814-4 (Version None)
Quarter: 2007Q3

REPORT INFORMATION
  Report Type: 
  Country: None (occurrence: None)
  Receive Date: 20070725
  Receipt Date: 20060831
  Transmission Date: 20080115
  Serious: No
  Sender: FDA-Public Use
  Company Number: US-AMGEN-KDL192079

PATIENT
  Sex: Male

DRUGS (5)
  1. PROCRIT [Suspect]
     Indication: PRE-EXISTING DISEASE
     Dates: start: 20060829
  2. LEVOTHYROXINE SODIUM [Concomitant]
  3. PEG-INTRON [Concomitant]
  4. RIBAVIRIN [Concomitant]
  5. ZOLOFT [Concomitant]

REACTIONS (3)
  - DEREALISATION [None]
  - DISORIENTATION [None]
  - EATING DISORDER [None]
